FAERS Safety Report 6762283-2 (Version None)
Quarter: 2010Q2

REPORT INFORMATION
  Report Type: 
  Country: None (occurrence: None)
  Receive Date: 20100510
  Receipt Date: 20100427
  Transmission Date: 20101027
  Serious: Yes (Death, Other)
  Sender: FDA-Public Use
  Company Number: AEUSA201000093

PATIENT
  Age: 3 Year
  Sex: Male
  Weight: 11.2 kg

DRUGS (6)
  1. GAMUNEX [Suspect]
     Dosage: X1;IV
     Route: 042
     Dates: start: 20100315, end: 20100315
  2. GAMUNEX [Suspect]
  3. FUROSEMIDE [Concomitant]
  4. HYDROCORTISONE [Concomitant]
  5. LANSOPRAZOLE [Concomitant]
  6. LEVABUTEROL HYDROCHLORIDE [Concomitant]

REACTIONS (11)
  - ACTIVATED PARTIAL THROMBOPLASTIN TIME PROLONGED [None]
  - BLOOD URINE PRESENT [None]
  - COMPLICATIONS OF BONE MARROW TRANSPLANT [None]
  - GLUCOSE URINE PRESENT [None]
  - HAEMATOCRIT DECREASED [None]
  - HAEMOGLOBIN DECREASED [None]
  - HAEMOLYSIS [None]
  - PLATELET COUNT DECREASED [None]
  - PROTEIN URINE PRESENT [None]
  - PROTHROMBIN TIME PROLONGED [None]
  - RENAL FAILURE [None]
